FAERS Safety Report 4435307-5 (Version None)
Quarter: 2004Q3

REPORT INFORMATION
  Report Type: 
  Country: None (occurrence: None)
  Receive Date: 20040827
  Receipt Date: 20040826
  Transmission Date: 20050211
  Serious: Yes (Death)
  Sender: FDA-Public Use
  Company Number: PHBS2004VE11252

PATIENT
  Age: 24 Year
  Sex: Female

DRUGS (2)
  1. TEGRETOL [Suspect]
     Route: 048
  2. ANTIEPILEPTICS [Suspect]
     Indication: EPILEPSY

REACTIONS (2)
  - COMPLETED SUICIDE [None]
  - OVERDOSE [None]
